FAERS Safety Report 21589617 (Version 1)
Quarter: 2022Q4

REPORT INFORMATION
  Report Type: Spontaneous
  Country: US (occurrence: None)
  Receive Date: 20221111
  Receipt Date: 20221111
  Transmission Date: 20230112
  Serious: Yes (Other)
  Sender: FDA-Public Use
  Company Number: None

PATIENT
  Age: 27 Year
  Sex: Female
  Weight: 88.9 kg

DRUGS (8)
  1. WILATE - VON WILLEBRAND FACTOR/COAGULATION FACTOR VIII COMPLEX (HUMAN) [Suspect]
     Active Substance: HUMAN COAGULATION FACTOR VIII/VON WILLEBRAND FACTOR COMPLEX
     Indication: Von Willebrand^s disease
     Dates: start: 20221103, end: 20221103
  2. Tranexamic Acid 1300 mg PO TID [Concomitant]
     Dates: start: 20221101
  3. Atorvastatin 40 mg PO daily [Concomitant]
     Dates: start: 20220401
  4. Vitamin D 25 mcg PO daily [Concomitant]
     Dates: start: 20201118
  5. Ozempic 0.25 mg SQ weekly [Concomitant]
     Dates: start: 20201118
  6. Testosterone 50 mg IM weekly [Concomitant]
     Dates: start: 20160914
  7. Zyrtec 10 mg PO daily [Concomitant]
     Dates: start: 20190823
  8. Prevacid 15 mg PO daily [Concomitant]
     Dates: start: 20190824

REACTIONS (1)
  - Anaphylactic reaction [None]

NARRATIVE: CASE EVENT DATE: 20221103
